FAERS Safety Report 25759528 (Version 1)
Quarter: 2025Q3

REPORT INFORMATION
  Report Type: Spontaneous
  Country: EU (occurrence: EU)
  Receive Date: 20250904
  Receipt Date: 20250904
  Transmission Date: 20251020
  Serious: Yes (Other)
  Sender: BOEHRINGER INGELHEIM
  Company Number: EU-BoehringerIngelheim-2025-BI-092369

PATIENT
  Sex: Male

DRUGS (1)
  1. PRAMIPEXOLE [Suspect]
     Active Substance: PRAMIPEXOLE
     Indication: Parkinson^s disease

REACTIONS (4)
  - Suicidal ideation [Unknown]
  - Gambling disorder [Unknown]
  - Abnormal behaviour [Unknown]
  - Theft [Unknown]
